FAERS Safety Report 19757133 (Version 2)
Quarter: 2021Q3

REPORT INFORMATION
  Report Type: Spontaneous
  Country: JP (occurrence: JP)
  Receive Date: 20210828
  Receipt Date: 20210905
  Transmission Date: 20211014
  Serious: Yes (Hospitalization)
  Sender: FDA-Public Use
  Company Number: JP-JNJFOC-A-US2020-200997

PATIENT
  Age: 19 Year
  Sex: Male

DRUGS (11)
  1. ILOPROST. [Suspect]
     Active Substance: ILOPROST
     Indication: PULMONARY ARTERIAL HYPERTENSION
     Dosage: 10 MCG/ML, UNK
     Route: 055
     Dates: start: 20190401
  2. ILOPROST. [Suspect]
     Active Substance: ILOPROST
     Route: 055
     Dates: start: 20200222
  3. ILOPROST. [Suspect]
     Active Substance: ILOPROST
     Route: 055
  4. UPTRAVI [Suspect]
     Active Substance: SELEXIPAG
     Indication: PRODUCT USED FOR UNKNOWN INDICATION
     Dosage: DAILY DOSE 3.2 MG
     Route: 048
  5. ILOPROST. [Suspect]
     Active Substance: ILOPROST
     Dosage: 5 G
     Route: 055
     Dates: start: 20190722
  6. ADCIRCA [Suspect]
     Active Substance: TADALAFIL
     Indication: PRODUCT USED FOR UNKNOWN INDICATION
     Dosage: DAILY DOSE 40 MG
     Route: 048
  7. ILOPROST. [Suspect]
     Active Substance: ILOPROST
     Dosage: 2.5 G, 5ID
     Route: 055
     Dates: start: 20190513, end: 20190721
  8. ILOPROST. [Suspect]
     Active Substance: ILOPROST
     Route: 055
     Dates: start: 20200113, end: 20210221
  9. VOLIBRIS [Suspect]
     Active Substance: AMBRISENTAN
     Indication: PRODUCT USED FOR UNKNOWN INDICATION
     Dosage: DAILY DOSE 10 MG
     Route: 048
  10. ALLELOCK [Concomitant]
     Active Substance: OLOPATADINE HYDROCHLORIDE
     Dosage: DAILY DOSE 10 MG
     Route: 048
  11. OXYGEN. [Concomitant]
     Active Substance: OXYGEN
     Dosage: UNK

REACTIONS (1)
  - Haemoptysis [Recovered/Resolved]

NARRATIVE: CASE EVENT DATE: 20200113
